FAERS Safety Report 11399727 (Version 4)
Quarter: 2016Q1

REPORT INFORMATION
  Report Type: Report from Study
  Country: BR (occurrence: BR)
  Receive Date: 20150820
  Receipt Date: 20160223
  Transmission Date: 20160525
  Serious: Yes (Other)
  Sender: FDA-Public Use
  Company Number: PHHY2015BR099821

PATIENT
  Age: 52 Year
  Sex: Male
  Weight: 63 kg

DRUGS (5)
  1. ADDERA D3 [Concomitant]
     Active Substance: CHOLECALCIFEROL
     Indication: PRODUCT USED FOR UNKNOWN INDICATION
     Route: 065
  2. ETNA                               /08553901/ [Concomitant]
     Indication: PRODUCT USED FOR UNKNOWN INDICATION
     Route: 065
  3. ACLASTA [Suspect]
     Active Substance: ZOLEDRONIC ACID
     Indication: OSTEOPOROSIS
     Dosage: 5 MG, Q12MO
     Route: 042
     Dates: start: 20140915
  4. INSULIN [Concomitant]
     Active Substance: INSULIN NOS
     Indication: PRODUCT USED FOR UNKNOWN INDICATION
     Route: 065
  5. ROSUVASTATIN [Concomitant]
     Active Substance: ROSUVASTATIN
     Indication: PRODUCT USED FOR UNKNOWN INDICATION
     Route: 065

REACTIONS (13)
  - Cushing^s syndrome [Recovering/Resolving]
  - Optic nerve disorder [Unknown]
  - Bone density decreased [Unknown]
  - Fall [Unknown]
  - Weight decreased [Unknown]
  - Accident [Unknown]
  - Hypokinesia [Recovered/Resolved with Sequelae]
  - Adrenal neoplasm [Recovering/Resolving]
  - Upper limb fracture [Recovering/Resolving]
  - Hormone level abnormal [Unknown]
  - Osteoporosis [Unknown]
  - Diabetes mellitus [Unknown]
  - Limb discomfort [Unknown]

NARRATIVE: CASE EVENT DATE: 201501
